FAERS Safety Report 9732754 (Version 3)
Quarter: 2014Q1

REPORT INFORMATION
  Report Type: Spontaneous
  Country: JP (occurrence: JP)
  Receive Date: 20131204
  Receipt Date: 20140114
  Transmission Date: 20141002
  Serious: Yes (Other)
  Sender: FDA-Public Use
  Company Number: JP-GLAXOSMITHKLINE-B0949230A

PATIENT
  Age: 65 Year
  Sex: Male

DRUGS (9)
  1. LAMICTAL [Suspect]
     Indication: EPILEPSY
     Dosage: 150MG TWICE PER DAY
     Route: 048
     Dates: start: 20110901, end: 20131125
  2. HORIZON [Concomitant]
     Route: 048
     Dates: start: 201211, end: 20131125
  3. HORIZON [Concomitant]
     Dosage: 2MG TWICE PER DAY
     Route: 048
     Dates: start: 20131126
  4. RIVOTRIL [Concomitant]
     Route: 048
     Dates: start: 201211, end: 20131125
  5. RIVOTRIL [Concomitant]
     Dosage: .5MG THREE TIMES PER DAY
     Route: 048
     Dates: start: 20131126, end: 20131126
  6. TAMSULOSIN HYDROCHLORIDE [Concomitant]
     Dosage: .2MG PER DAY
     Route: 048
  7. MINZAIN [Concomitant]
     Dosage: .25MG PER DAY
     Route: 048
  8. FLUNITRAZEPAM [Concomitant]
     Dosage: 2MG PER DAY
     Route: 048
  9. BROTIZOLAM [Concomitant]
     Dosage: .25MG PER DAY
     Route: 048

REACTIONS (4)
  - Blood pressure decreased [Recovering/Resolving]
  - Pallor [Recovering/Resolving]
  - Somnolence [Recovering/Resolving]
  - Sedation [Recovered/Resolved]
